FAERS Safety Report 9510331 (Version 2)
Quarter: 2013Q3

REPORT INFORMATION
  Report Type: Spontaneous
  Country: US (occurrence: US)
  Receive Date: 20130909
  Receipt Date: 20130909
  Transmission Date: 20140515
  Serious: No
  Sender: FDA-Public Use
  Company Number: US-BRISTOL-MYERS SQUIBB COMPANY-17449869

PATIENT
  Age: 65 Year
  Sex: Female
  Weight: 72.56 kg

DRUGS (3)
  1. ABILIFY [Suspect]
     Indication: ANXIETY
     Dosage: STOPPED FOR 2 WEEKS AND RESTARTED.
     Dates: start: 20120729
  2. MULTIVITAMINS [Concomitant]
  3. SIMVASTATIN [Concomitant]
     Indication: BLOOD CHOLESTEROL
     Dosage: QHS

REACTIONS (5)
  - Muscle twitching [Unknown]
  - Dry eye [Unknown]
  - Pollakiuria [Unknown]
  - Eye pain [Unknown]
  - Visual impairment [Unknown]
